FAERS Safety Report 5339545-9 (Version None)
Quarter: 2007Q2

REPORT INFORMATION
  Report Type: 
  Country: None (occurrence: None)
  Receive Date: 20070405
  Receipt Date: 20061128
  Transmission Date: 20071010
  Serious: No
  Sender: FDA-Public Use
  Company Number: US200611005012

PATIENT
  Sex: Male

DRUGS (5)
  1. CYMBALTA [Suspect]
     Indication: DEPRESSION
     Dosage: SEE IMAGE
     Dates: start: 20060101, end: 20060101
  2. CYMBALTA [Suspect]
     Indication: DEPRESSION
     Dosage: SEE IMAGE
     Dates: start: 20060101, end: 20061125
  3. CYMBALTA [Suspect]
     Indication: DEPRESSION
     Dosage: SEE IMAGE
     Dates: start: 20061126
  4. INSULIN (INSULIN) [Concomitant]
  5. REGLAN /USA/ (METOCLOPRAMIDE HYDROCHLORIDE) [Concomitant]

REACTIONS (2)
  - DRUG INEFFECTIVE [None]
  - FLAT AFFECT [None]
